FAERS Safety Report 16763948 (Version 1)
Quarter: 2019Q3

REPORT INFORMATION
  Report Type: Spontaneous
  Country: SE (occurrence: SE)
  Receive Date: 20190902
  Receipt Date: 20190902
  Transmission Date: 20191005
  Serious: Yes (Hospitalization)
  Sender: FDA-Public Use
  Company Number: SE-ASTRAZENECA-2019SF22903

PATIENT
  Age: 31 Year
  Sex: Male

DRUGS (5)
  1. OMEPRAZOLE. [Suspect]
     Active Substance: OMEPRAZOLE
     Dosage: 280.0MG UNKNOWN
     Route: 048
     Dates: start: 20190207, end: 20190207
  2. ALIMEMAZINE [Suspect]
     Active Substance: TRIMEPRAZINE
     Dosage: 280.0MG UNKNOWN
     Route: 048
     Dates: start: 20190207, end: 20190207
  3. OLANZAPINE. [Suspect]
     Active Substance: OLANZAPINE
     Dosage: 280.0MG UNKNOWN
     Route: 048
     Dates: start: 20190207, end: 20190207
  4. PROPAVAN [Suspect]
     Active Substance: PROPIOMAZINE
     Dosage: 700.0MG UNKNOWN
     Route: 048
     Dates: start: 20190207, end: 20190207
  5. LERGIGAN [PROMETHAZINE HYDROCHLORIDE] [Suspect]
     Active Substance: PROMETHAZINE HYDROCHLORIDE
     Dosage: 350.0MG UNKNOWN
     Route: 048
     Dates: start: 20190207, end: 20190207

REACTIONS (3)
  - Intentional overdose [Unknown]
  - Intentional self-injury [Unknown]
  - Tachycardia [Unknown]

NARRATIVE: CASE EVENT DATE: 20190207
